FAERS Safety Report 6875484-X (Version None)
Quarter: 2010Q3

REPORT INFORMATION
  Report Type: 
  Country: None (occurrence: None)
  Receive Date: 20100727
  Receipt Date: 20100720
  Transmission Date: 20110219
  Serious: Yes (Death)
  Sender: FDA-Public Use
  Company Number: JP-JNJFOC-20100702671

PATIENT
  Age: 84 Year
  Sex: Male

DRUGS (1)
  1. DUROTEP MT [Suspect]
     Indication: PROSTATE CANCER
     Route: 062

REACTIONS (1)
  - PROSTATE CANCER [None]
